FAERS Safety Report 8745671 (Version 2)
Quarter: 2012Q4

REPORT INFORMATION
  Report Type: Report from Study
  Country: CA (occurrence: CA)
  Receive Date: 20120826
  Receipt Date: 20121019
  Transmission Date: 20130627
  Serious: Yes (Other)
  Sender: FDA-Public Use
  Company Number: CA-BRISTOL-MYERS SQUIBB COMPANY-16635534

PATIENT
  Age: 33 Year
  Sex: Female

DRUGS (6)
  1. ORENCIA [Suspect]
     Indication: RHEUMATOID ARTHRITIS
     Dosage: Restarted on 23Mar2012( Inf:9). Lotno;2D73510
Last dose: 25May2012,17Jul2012,09Oct12
     Route: 042
     Dates: start: 20090824
  2. PREDNISONE [Concomitant]
  3. FOLIC ACID [Concomitant]
  4. SYNTHROID [Concomitant]
  5. PLAQUENIL [Concomitant]
  6. METHOTREXATE [Concomitant]

REACTIONS (4)
  - Infertility [Unknown]
  - Stomatitis [Recovered/Resolved]
  - Arthralgia [Unknown]
  - Mouth ulceration [Recovered/Resolved]
